FAERS Safety Report 24341100 (Version 7)
Quarter: 2024Q4

REPORT INFORMATION
  Report Type: Spontaneous
  Country: US (occurrence: US)
  Receive Date: 20240919
  Receipt Date: 20241112
  Transmission Date: 20250114
  Serious: Yes (Death, Life-Threatening, Other)
  Sender: AMGEN
  Company Number: US-AMGEN-USASP2024185063

PATIENT
  Age: 58 Year
  Sex: Female

DRUGS (9)
  1. IMDELLTRA [Suspect]
     Active Substance: TARLATAMAB-DLLE
     Indication: Small cell lung cancer extensive stage
     Dosage: 1 MILLIGRAM, ONCE
     Route: 042
     Dates: start: 20240914
  2. METHYLPREDNISOLONE [Concomitant]
     Active Substance: METHYLPREDNISOLONE
     Indication: Immune effector cell-associated neurotoxicity syndrome
     Dosage: UNK
     Dates: start: 20240913
  3. METHYLPREDNISOLONE [Concomitant]
     Active Substance: METHYLPREDNISOLONE
     Dosage: UNK
     Dates: start: 20240915
  4. CLARITIN [Concomitant]
     Active Substance: LORATADINE
  5. MEMANTINE [Concomitant]
     Active Substance: MEMANTINE
  6. MOMETASONE [Concomitant]
     Active Substance: MOMETASONE
  7. RIVAROXABAN [Concomitant]
     Active Substance: RIVAROXABAN
  8. SENNA [Concomitant]
     Active Substance: SENNA LEAF\SENNOSIDES\SENNOSIDES A AND B
  9. LORATADINE [Concomitant]
     Active Substance: LORATADINE

REACTIONS (8)
  - Ventricular tachycardia [Fatal]
  - Atrial fibrillation [Unknown]
  - Cytokine release syndrome [Unknown]
  - Acute respiratory failure [Unknown]
  - Acute kidney injury [Unknown]
  - Thrombocytopenia [Unknown]
  - Physical deconditioning [Unknown]
  - Bradycardia [Unknown]

NARRATIVE: CASE EVENT DATE: 20240914
